FAERS Safety Report 17149534 (Version 1)
Quarter: 2019Q4

REPORT INFORMATION
  Report Type: Report from Study
  Country: US (occurrence: US)
  Receive Date: 20191213
  Receipt Date: 20191213
  Transmission Date: 20200122
  Serious: Yes (Hospitalization)
  Sender: FDA-Public Use
  Company Number: US-ACTELION-A-NJ2019-197963

PATIENT
  Sex: Female
  Weight: 50.79 kg

DRUGS (2)
  1. AMLODIPINE [Concomitant]
     Active Substance: AMLODIPINE BESYLATE
  2. OPSUMIT [Suspect]
     Active Substance: MACITENTAN
     Indication: PULMONARY HYPERTENSION
     Dosage: 10 MG, QD
     Route: 048

REACTIONS (10)
  - Pneumonia [Unknown]
  - Unevaluable event [Unknown]
  - Dyspnoea exertional [Unknown]
  - Pain [Unknown]
  - Feeling abnormal [Unknown]
  - Heart rate increased [Unknown]
  - Oedema peripheral [Unknown]
  - Chest pain [Unknown]
  - Viral infection [Unknown]
  - Dyspnoea [Unknown]
